FAERS Safety Report 9018020 (Version 1)
Quarter: 2013Q1

REPORT INFORMATION
  Report Type: Spontaneous
  Country: US (occurrence: None)
  Receive Date: 20130110
  Receipt Date: 20130110
  Transmission Date: 20140127
  Serious: Yes (Hospitalization)
  Sender: FDA-Public Use
  Company Number: None

PATIENT
  Sex: Female

DRUGS (8)
  1. RANIBIZUMAB [Suspect]
     Indication: AGE-RELATED MACULAR DEGENERATION
     Dosage: 1.0 MG PRN INTRAVITREAL
     Route: 050
     Dates: start: 20121005
  2. RANIBIZUMAB [Suspect]
     Indication: AGE-RELATED MACULAR DEGENERATION
     Dosage: 2.0 MG PRN INTRAVITREAL
     Route: 050
     Dates: start: 20110810, end: 20111207
  3. LOVASTATIN [Concomitant]
  4. WARFARIN [Concomitant]
  5. METOPROLOL [Concomitant]
  6. FUROSEMIDE [Concomitant]
  7. KLORCON [Concomitant]
  8. ALL DAY ALLERGY [Concomitant]

REACTIONS (4)
  - Cardiac failure congestive [None]
  - Fall [None]
  - Pelvic fracture [None]
  - Dyspnoea [None]
